FAERS Safety Report 11646864 (Version 1)
Quarter: 2015Q4

REPORT INFORMATION
  Report Type: Spontaneous
  Country: US (occurrence: US)
  Receive Date: 20151020
  Receipt Date: 20151020
  Transmission Date: 20160304
  Serious: No
  Sender: FDA-Public Use
  Company Number: US-ROCHE-1617262

PATIENT
  Age: 74 Year
  Sex: Male

DRUGS (2)
  1. ESBRIET [Suspect]
     Active Substance: PIRFENIDONE
     Indication: IDIOPATHIC PULMONARY FIBROSIS
     Route: 048
     Dates: end: 20150731
  2. ESBRIET [Suspect]
     Active Substance: PIRFENIDONE
     Route: 048
     Dates: start: 20150731

REACTIONS (1)
  - Gastrooesophageal reflux disease [Unknown]
